FAERS Safety Report 18687604 (Version 1)
Quarter: 2020Q4

REPORT INFORMATION
  Report Type: Report from Study
  Country: US (occurrence: US)
  Receive Date: 20201231
  Receipt Date: 20201231
  Transmission Date: 20210114
  Serious: Yes (Hospitalization)
  Sender: FDA-Public Use
  Company Number: US-BAYER-2020-285444

PATIENT
  Age: 7 Year
  Sex: Male

DRUGS (1)
  1. NEXAVAR [Suspect]
     Active Substance: SORAFENIB
     Indication: ACUTE MYELOID LEUKAEMIA
     Dosage: DAILY DOSE 200 MG
     Route: 048

REACTIONS (5)
  - Product use in unapproved indication [None]
  - Hospitalisation [None]
  - Rash [Unknown]
  - Product administered to patient of inappropriate age [None]
  - Off label use [None]
